FAERS Safety Report 6378546-9 (Version None)
Quarter: 2009Q3

REPORT INFORMATION
  Report Type: 
  Country: None (occurrence: None)
  Receive Date: 20090928
  Receipt Date: 20090922
  Transmission Date: 20100115
  Serious: Yes (Other)
  Sender: FDA-Public Use
  Company Number: US-JNJFOC-20090906822

PATIENT

DRUGS (1)
  1. LEVOFLOXACIN [Suspect]
     Indication: ENDOCARDITIS
     Route: 065

REACTIONS (2)
  - DRUG RESISTANCE [None]
  - ENDOPHTHALMITIS [None]
